FAERS Safety Report 10302494 (Version 2)
Quarter: 2014Q4

REPORT INFORMATION
  Report Type: Other
  Country: IT (occurrence: IT)
  Receive Date: 20140714
  Receipt Date: 20141002
  Transmission Date: 20150528
  Serious: Yes (Other)
  Sender: FDA-Public Use
  Company Number: IT-MYLANLABS-2014S1016174

PATIENT

DRUGS (4)
  1. GABAPENTIN. [Suspect]
     Active Substance: GABAPENTIN
     Indication: BIPOLAR DISORDER
     Dosage: 1100 MG,QD
     Route: 048
     Dates: start: 20140416, end: 20140520
  2. GABAPENTIN. [Suspect]
     Active Substance: GABAPENTIN
     Dosage: 1500 MG,QD
     Route: 048
     Dates: start: 20140521, end: 20140605
  3. RISPERDAL [Suspect]
     Active Substance: RISPERIDONE
     Indication: BIPOLAR DISORDER
     Dosage: 3 MG,QD
     Route: 048
     Dates: start: 20140416, end: 20140605
  4. HALDOL [Suspect]
     Active Substance: HALOPERIDOL
     Indication: BIPOLAR DISORDER
     Dosage: 5 MG,QD
     Route: 048
     Dates: start: 20140521, end: 20140605

REACTIONS (8)
  - Dysarthria [Unknown]
  - Insomnia [Unknown]
  - Extrapyramidal disorder [Unknown]
  - Adverse reaction [Unknown]
  - Oral infection [Unknown]
  - Dysphagia [Unknown]
  - Psychomotor hyperactivity [Unknown]
  - Weight decreased [Unknown]

NARRATIVE: CASE EVENT DATE: 20140523
